FAERS Safety Report 11272037 (Version 1)
Quarter: 2015Q3

REPORT INFORMATION
  Report Type: Spontaneous
  Country: IT (occurrence: None)
  Receive Date: 20150713
  Receipt Date: 20150713
  Transmission Date: 20151125
  Serious: Yes (Hospitalization)
  Sender: FDA-Public Use
  Company Number: CO-PL-IT-2015-119

PATIENT
  Age: 43 Year
  Sex: Female

DRUGS (4)
  1. PLAQUENIL [Suspect]
     Active Substance: HYDROXYCHLOROQUINE SULFATE
     Indication: RHEUMATOID ARTHRITIS
     Route: 048
     Dates: start: 20150101, end: 20150208
  2. ENTACT (ESCITALOPRAM OXALATE) [Concomitant]
  3. EN [Concomitant]
     Active Substance: DELORAZEPAM
  4. DELTACORTENE [Suspect]
     Active Substance: PREDNISONE
     Indication: RHEUMATOID ARTHRITIS
     Route: 048
     Dates: start: 20140101, end: 20150208

REACTIONS (1)
  - Pneumonia influenzal [None]

NARRATIVE: CASE EVENT DATE: 20150208
